FAERS Safety Report 11105854 (Version 3)
Quarter: 2017Q2

REPORT INFORMATION
  Report Type: Spontaneous
  Country: AT (occurrence: AT)
  Receive Date: 20150512
  Receipt Date: 20170519
  Transmission Date: 20170829
  Serious: Yes (Hospitalization, Other)
  Sender: FDA-Public Use
  Company Number: AT-SUN PHARMACEUTICAL INDUSTRIES LTD-2015R1-95993

PATIENT
  Age: 53 Year
  Sex: Female

DRUGS (6)
  1. ACETYLSALICYLIC ACID [Concomitant]
     Active Substance: ASPIRIN
     Indication: PRODUCT USED FOR UNKNOWN INDICATION
     Dosage: UNK
     Route: 065
  2. PANTOPRAZOLE [Concomitant]
     Active Substance: PANTOPRAZOLE
     Indication: PRODUCT USED FOR UNKNOWN INDICATION
     Dosage: UNK
     Route: 065
  3. MAGNESIUM [Concomitant]
     Active Substance: MAGNESIUM
     Indication: PRODUCT USED FOR UNKNOWN INDICATION
     Dosage: UNK
     Route: 065
  4. TIZANIDINE. [Suspect]
     Active Substance: TIZANIDINE
     Indication: INTERVERTEBRAL DISC PROTRUSION
     Dosage: 30-40 PIECES, DAILY
     Route: 065
  5. NICORANDIL [Concomitant]
     Active Substance: NICORANDIL
     Indication: PRODUCT USED FOR UNKNOWN INDICATION
     Dosage: UNK
     Route: 065
  6. TIZANIDINE. [Suspect]
     Active Substance: TIZANIDINE
     Dosage: EXCEED A DAILY DOSE OF 40 TABLETS, DAILY
     Route: 065

REACTIONS (13)
  - Overdose [Recovered/Resolved]
  - Disorientation [Recovered/Resolved]
  - Treatment noncompliance [Unknown]
  - Drug withdrawal syndrome [Recovered/Resolved]
  - Restlessness [Recovered/Resolved]
  - Confusional state [Recovered/Resolved]
  - Tachycardia [Recovered/Resolved]
  - Tremor [Recovered/Resolved]
  - Nausea [Recovered/Resolved]
  - Vomiting [Recovered/Resolved]
  - Hypertension [Recovered/Resolved]
  - Cold sweat [Recovered/Resolved]
  - Psychomotor hyperactivity [Recovered/Resolved]
